FAERS Safety Report 16970647 (Version 2)
Quarter: 2019Q4

REPORT INFORMATION
  Report Type: Spontaneous
  Country: ES (occurrence: ES)
  Receive Date: 20191029
  Receipt Date: 20191119
  Transmission Date: 20200122
  Serious: Yes (Hospitalization)
  Sender: FDA-Public Use
  Company Number: ES-BAYER-2019-189242

PATIENT
  Age: 75 Year
  Sex: Male

DRUGS (5)
  1. TARDYFERON [Concomitant]
     Active Substance: FERROUS SULFATE
     Dosage: 80 MG
     Route: 048
     Dates: start: 20190827, end: 20191011
  2. LOSARTAN. [Concomitant]
     Active Substance: LOSARTAN
     Indication: HEAD INJURY
     Dosage: 100 MG
     Route: 048
     Dates: start: 20191011
  3. OMEPRAZOLE. [Concomitant]
     Active Substance: OMEPRAZOLE
     Dosage: 20 MG
     Route: 048
     Dates: start: 20191011
  4. STIVARGA [Suspect]
     Active Substance: REGORAFENIB
     Indication: HEPATOCELLULAR CARCINOMA
     Dosage: 80 MG, QD
     Route: 048
     Dates: start: 20140402, end: 20191001
  5. FAMOTIDINE. [Concomitant]
     Active Substance: FAMOTIDINE
     Dosage: 40 MG
     Route: 048
     Dates: start: 20191011

REACTIONS (5)
  - Cerebrovascular accident [Recovered/Resolved]
  - Aphasia [Recovering/Resolving]
  - Carotid artery stenosis [None]
  - Hypertensive emergency [Recovered/Resolved]
  - Confusional state [None]

NARRATIVE: CASE EVENT DATE: 201910
